FAERS Safety Report 9350894 (Version 2)
Quarter: 2013Q2

REPORT INFORMATION
  Report Type: Spontaneous
  Country: US (occurrence: US)
  Receive Date: 20130617
  Receipt Date: 20130617
  Transmission Date: 20140414
  Serious: Yes (Hospitalization, Other)
  Sender: FDA-Public Use
  Company Number: US-ASTELLAS-2013US003851

PATIENT
  Age: 39 Year
  Sex: Male

DRUGS (9)
  1. PROGRAF [Suspect]
     Indication: RENAL TRANSPLANT
     Dosage: 9 MG, UID/QD
     Route: 048
  2. NEXIUM /01479302/ [Suspect]
     Indication: PRODUCT USED FOR UNKNOWN INDICATION
     Dosage: 40 MG, UID/QD
     Route: 065
  3. PREDNISONE [Concomitant]
     Indication: PRODUCT USED FOR UNKNOWN INDICATION
     Dosage: 5 MG, UID/QD
     Route: 065
  4. AMLODIPINE [Concomitant]
     Indication: PRODUCT USED FOR UNKNOWN INDICATION
     Dosage: UNK
     Route: 065
  5. BYSTOLIC [Concomitant]
     Indication: PRODUCT USED FOR UNKNOWN INDICATION
     Dosage: 10 MG, BID
     Route: 065
  6. NEURONTIN [Concomitant]
     Indication: PRODUCT USED FOR UNKNOWN INDICATION
     Dosage: 900 MG, 300 MG IN AM AND 600 MG IN PM.
     Route: 065
  7. ZEMPLAR [Concomitant]
     Indication: PRODUCT USED FOR UNKNOWN INDICATION
     Dosage: 1 UG, UID/QD
     Route: 065
  8. VOLTAREN                           /00372301/ [Concomitant]
     Indication: PRODUCT USED FOR UNKNOWN INDICATION
     Dosage: UNK
     Route: 065
  9. ARAVA [Concomitant]
     Indication: PRODUCT USED FOR UNKNOWN INDICATION
     Dosage: UNK
     Route: 065

REACTIONS (17)
  - Drug ineffective [Unknown]
  - Fistula [Unknown]
  - Hip arthroplasty [Unknown]
  - Renal transplant [Unknown]
  - Transplant failure [Unknown]
  - Kidney transplant rejection [Unknown]
  - Human polyomavirus infection [Unknown]
  - Nephropathy toxic [Unknown]
  - Chronic allograft nephropathy [Unknown]
  - Retinopathy hypertensive [Unknown]
  - Clostridium difficile colitis [Unknown]
  - Fatigue [Unknown]
  - Micturition urgency [Unknown]
  - Pollakiuria [Unknown]
  - Neuropathy peripheral [Unknown]
  - Oedema peripheral [Unknown]
  - Arthralgia [Unknown]
